FAERS Safety Report 12877658 (Version 1)
Quarter: 2016Q4

REPORT INFORMATION
  Report Type: Spontaneous
  Country: US (occurrence: US)
  Receive Date: 20161024
  Receipt Date: 20161024
  Transmission Date: 20170207
  Serious: Yes (Death, Hospitalization, Other)
  Sender: FDA-Public Use
  Company Number: US-PFIZER INC-2016444605

PATIENT
  Age: 82 Year
  Sex: Male

DRUGS (1)
  1. CORDARONE [Suspect]
     Active Substance: AMIODARONE HYDROCHLORIDE
     Indication: ATRIAL FIBRILLATION
     Dosage: UNK
     Dates: start: 20100105

REACTIONS (4)
  - Acute respiratory distress syndrome [Fatal]
  - Pulmonary toxicity [Fatal]
  - Pulmonary fibrosis [Fatal]
  - Neuropathy peripheral [Unknown]
